FAERS Safety Report 23847390 (Version 1)
Quarter: 2024Q2

REPORT INFORMATION
  Report Type: Spontaneous
  Country: US (occurrence: US)
  Receive Date: 20240513
  Receipt Date: 20240513
  Transmission Date: 20240716
  Serious: Yes (Hospitalization)
  Sender: FDA-Public Use
  Company Number: US-KHC-000025

PATIENT

DRUGS (1)
  1. POLYVINYL ALCOHOL [Suspect]
     Active Substance: POLYVINYL ALCOHOL
     Indication: Product used for unknown indication
     Route: 065

REACTIONS (5)
  - Vision blurred [Unknown]
  - Dizziness [Unknown]
  - Headache [Unknown]
  - Recalled product [Unknown]
  - Recalled product administered [Unknown]

NARRATIVE: CASE EVENT DATE: 20231118
